FAERS Safety Report 8604395-4 (Version None)
Quarter: 2012Q3

REPORT INFORMATION
  Report Type: 
  Country: None (occurrence: None)
  Receive Date: 20120820
  Receipt Date: 20120809
  Transmission Date: 20120928
  Serious: Yes (Other)
  Sender: FDA-Public Use
  Company Number: US-JNJFOC-20120806507

PATIENT
  Age: 20 Year
  Sex: Female

DRUGS (4)
  1. REMICADE [Suspect]
     Indication: CROHN'S DISEASE
     Route: 042
     Dates: start: 20100101, end: 20100101
  2. REMICADE [Suspect]
     Route: 042
  3. REMICADE [Suspect]
     Route: 042
     Dates: start: 20100101, end: 20100101
  4. REMICADE [Suspect]
     Indication: ARTHRITIS
     Route: 042

REACTIONS (6)
  - INFUSION RELATED REACTION [None]
  - DYSPNOEA [None]
  - CHROMATURIA [None]
  - RED BLOOD CELLS URINE [None]
  - BACK PAIN [None]
  - CROHN'S DISEASE [None]
